FAERS Safety Report 7605204-2 (Version None)
Quarter: 2011Q3

REPORT INFORMATION
  Report Type: 
  Country: None (occurrence: None)
  Receive Date: 20110705
  Receipt Date: 20110620
  Transmission Date: 20111222
  Serious: Yes (Hospitalization)
  Sender: FDA-Public Use
  Company Number: 2011MA007770

PATIENT
  Age: 79 Year
  Sex: Male

DRUGS (1)
  1. SULFATRIM PEDIATRIC [Suspect]
     Indication: CELLULITIS
     Dosage: 800.160 MG; QD;

REACTIONS (9)
  - HYPOGLYCAEMIA [None]
  - FALL [None]
  - BLOOD CREATININE INCREASED [None]
  - BLOOD UREA INCREASED [None]
  - COGNITIVE DISORDER [None]
  - CREATININE RENAL CLEARANCE DECREASED [None]
  - BLOOD INSULIN INCREASED [None]
  - BLOOD CREATINE PHOSPHOKINASE INCREASED [None]
  - INSULIN C-PEPTIDE INCREASED [None]
